FAERS Safety Report 4474308-8 (Version None)
Quarter: 2004Q4

REPORT INFORMATION
  Report Type: 
  Country: None (occurrence: None)
  Receive Date: 20041008
  Receipt Date: 20040929
  Transmission Date: 20050328
  Serious: No
  Sender: FDA-Public Use
  Company Number: 21680

PATIENT
  Age: 61 Year
  Sex: Male

DRUGS (4)
  1. ALDARA [Suspect]
     Indication: BOWEN'S DISEASE
     Dosage: (1 SACHET, 1 IN 1 DAY (S)), TOPICAL
     Route: 061
     Dates: start: 20030601, end: 20030709
  2. TERAZOSIN HCL [Concomitant]
  3. LOVASTATIN [Concomitant]
  4. IBUPROFEN [Concomitant]

REACTIONS (5)
  - ANGIONEUROTIC OEDEMA [None]
  - APPLICATION SITE DESQUAMATION [None]
  - APPLICATION SITE ULCER [None]
  - DYSPHAGIA [None]
  - SPEECH DISORDER [None]
